FAERS Safety Report 11678982 (Version 1)
Quarter: 2015Q4

REPORT INFORMATION
  Report Type: Spontaneous
  Country: GB (occurrence: GB)
  Receive Date: 20151028
  Receipt Date: 20151028
  Transmission Date: 20160304
  Serious: Yes (Other)
  Sender: FDA-Public Use
  Company Number: GB-GLAXOSMITHKLINE-GB2015153214

PATIENT
  Age: 35 Year
  Sex: Female
  Weight: 57.15 kg

DRUGS (4)
  1. CETIRIZINE [Concomitant]
     Active Substance: CETIRIZINE HYDROCHLORIDE
  2. RELVAR ELLIPTA [Suspect]
     Active Substance: FLUTICASONE FUROATE\VILANTEROL TRIFENATATE
     Indication: ASTHMA
     Dosage: 184/22 UG/MG, ONE PUFF ONCE PER DAY
     Route: 055
     Dates: end: 2015
  3. PREDNISOL [Concomitant]
     Route: 048
  4. MOMETASONE FUROATE. [Concomitant]
     Active Substance: MOMETASONE FUROATE

REACTIONS (6)
  - Oropharyngeal pain [Unknown]
  - Cough [Recovering/Resolving]
  - Lip swelling [Recovered/Resolved]
  - Urticaria [Recovered/Resolved]
  - Nasal congestion [Recovering/Resolving]
  - Dysphonia [Unknown]

NARRATIVE: CASE EVENT DATE: 20150923
